FAERS Safety Report 25311124 (Version 1)
Quarter: 2025Q2

REPORT INFORMATION
  Report Type: Spontaneous
  Country: TW (occurrence: TW)
  Receive Date: 20250514
  Receipt Date: 20250514
  Transmission Date: 20250717
  Serious: Yes (Other)
  Sender: CELLTRION
  Company Number: TW-CELLTRION INC.-2025TW014246

PATIENT

DRUGS (6)
  1. HERZUMA [Suspect]
     Active Substance: TRASTUZUMAB-PKRB
     Indication: Breast cancer
     Route: 041
  2. TENOFOVIR ALAFENAMIDE [Concomitant]
     Active Substance: TENOFOVIR ALAFENAMIDE
     Route: 048
  3. FLOMOXEF SODIUM [Concomitant]
     Active Substance: FLOMOXEF SODIUM
     Route: 041
  4. LACTULOSE [Concomitant]
     Active Substance: LACTULOSE
     Route: 048
  5. FUROSEMIDE [Concomitant]
     Active Substance: FUROSEMIDE
     Route: 042
     Dates: start: 20250425, end: 20250427
  6. PLASBUMIN-25 LOW ALBUMIN [Concomitant]
     Route: 041

REACTIONS (3)
  - Chills [Recovered/Resolved]
  - Oxygen saturation decreased [Recovered/Resolved]
  - Pyrexia [Recovered/Resolved]

NARRATIVE: CASE EVENT DATE: 20250425
